FAERS Safety Report 5124538-7 (Version None)
Quarter: 2006Q3

REPORT INFORMATION
  Report Type: 
  Country: None (occurrence: None)
  Receive Date: 20060821
  Receipt Date: 20060718
  Transmission Date: 20061208
  Serious: No
  Sender: FDA-Public Use
  Company Number: TPA2006A01158

PATIENT
  Age: 36 Year
  Sex: Female
  Weight: 53.0709 kg

DRUGS (2)
  1. ROZEREM [Suspect]
     Indication: INITIAL INSOMNIA
     Dosage: 8 MG, HS, PER ORAL
     Route: 048
     Dates: start: 20060717
  2. AMBIEN [Concomitant]

REACTIONS (2)
  - FATIGUE [None]
  - INITIAL INSOMNIA [None]
